FAERS Safety Report 17885018 (Version 1)
Quarter: 2020Q2

REPORT INFORMATION
  Report Type: Spontaneous
  Country: US (occurrence: US)
  Receive Date: 20200611
  Receipt Date: 20200611
  Transmission Date: 20200714
  Serious: No
  Sender: FDA-Public Use
  Company Number: US-ASTRAZENECA-2020SE71855

PATIENT
  Age: 24065 Day
  Sex: Male
  Weight: 69.9 kg

DRUGS (2)
  1. FASENRA [Suspect]
     Active Substance: BENRALIZUMAB
     Indication: ASTHMA
     Dosage: 30 MG/ML, ONE INJECTION EVERY 4 WEEKS FOR THE FIRST THREE INJECTIONS THEN EVERY 8 WEEKS THEREAFTER
     Route: 058
     Dates: start: 2018, end: 202003
  2. FASENRA [Suspect]
     Active Substance: BENRALIZUMAB
     Indication: ASTHMA
     Dosage: 30 MG/ML, Q8WK
     Route: 058
     Dates: start: 20200527

REACTIONS (4)
  - Device issue [Unknown]
  - Incorrect dose administered by device [Not Recovered/Not Resolved]
  - Wrong technique in product usage process [Unknown]
  - Injection site pain [Recovered/Resolved]

NARRATIVE: CASE EVENT DATE: 20200527
